FAERS Safety Report 9366246 (Version 1)
Quarter: 2013Q2

REPORT INFORMATION
  Report Type: Spontaneous
  Country: US (occurrence: US)
  Receive Date: 20130625
  Receipt Date: 20130625
  Transmission Date: 20140414
  Serious: Yes (Other)
  Sender: FDA-Public Use
  Company Number: US-JNJFOC-20130608742

PATIENT
  Age: 30 Year
  Sex: Female

DRUGS (3)
  1. INVEGA SUSTENNA [Suspect]
     Indication: SCHIZOPHRENIA
     Route: 030
     Dates: end: 20130423
  2. INVEGA SUSTENNA [Suspect]
     Indication: SCHIZOPHRENIA
     Route: 030
     Dates: start: 20130606
  3. LITHIUM [Suspect]
     Indication: SCHIZOPHRENIA
     Route: 065

REACTIONS (4)
  - Aphasia [Recovered/Resolved]
  - Antipsychotic drug level increased [Unknown]
  - Eye movement disorder [Recovered/Resolved]
  - Muscle rigidity [Recovered/Resolved]
